FAERS Safety Report 7727439-0 (Version None)
Quarter: 2011Q3

REPORT INFORMATION
  Report Type: 
  Country: None (occurrence: None)
  Receive Date: 20110902
  Receipt Date: 20110824
  Transmission Date: 20111222
  Serious: Yes (Hospitalization)
  Sender: FDA-Public Use
  Company Number: JP-ABBOTT-11P-087-0850416-00

PATIENT
  Age: 54 Year
  Sex: Male

DRUGS (3)
  1. AMOXICILLIN [Suspect]
     Indication: HELICOBACTER INFECTION
     Dosage: 1 CARD, 2 IN 1 D
     Route: 048
     Dates: start: 20110608, end: 20110614
  2. CLARITHROMYCIN [Suspect]
     Indication: HELICOBACTER INFECTION
     Dosage: 1 CARD, 2 IN 1 D
     Route: 048
     Dates: start: 20110608, end: 20110614
  3. LANSOPRAZOLE [Suspect]
     Indication: HELICOBACTER INFECTION
     Dosage: 1 CARD, 2 IN 1 D
     Route: 048
     Dates: start: 20110608, end: 20110614

REACTIONS (1)
  - ERYTHEMA MULTIFORME [None]
